FAERS Safety Report 7625592-0 (Version None)
Quarter: 2011Q3

REPORT INFORMATION
  Report Type: 
  Country: None (occurrence: None)
  Receive Date: 20110721
  Receipt Date: 20110707
  Transmission Date: 20111222
  Serious: Yes (Other)
  Sender: FDA-Public Use
  Company Number: US-RANBAXY-2011RR-45954

PATIENT
  Sex: Female

DRUGS (4)
  1. LEVAQUIN [Suspect]
     Indication: CYSTITIS
     Dosage: UNK
     Route: 048
     Dates: start: 20060615
  2. LEVAQUIN [Suspect]
     Dosage: UNK
     Route: 048
     Dates: start: 20060701
  3. CIPROFLOXACIN [Suspect]
     Indication: URINARY TRACT INFECTION
     Dosage: UNK
     Route: 065
     Dates: start: 20060101
  4. LEVAQUIN [Suspect]
     Indication: KIDNEY INFECTION
     Dosage: UNK
     Route: 048
     Dates: start: 20040101, end: 20061231

REACTIONS (1)
  - ROTATOR CUFF SYNDROME [None]
